FAERS Safety Report 21928020 (Version 3)
Quarter: 2024Q4

REPORT INFORMATION
  Report Type: Report from Study
  Country: ZA (occurrence: ZA)
  Receive Date: 20230130
  Receipt Date: 20241105
  Transmission Date: 20250114
  Serious: Yes (Other)
  Sender: ROCHE
  Company Number: ZA-ROCHE-3267229

PATIENT
  Sex: Male

DRUGS (2)
  1. OCREVUS [Suspect]
     Active Substance: OCRELIZUMAB
     Indication: Relapsing-remitting multiple sclerosis
     Dosage: THEREAFTER 600 MG ONCE IN 6 MONTHS
     Route: 041
     Dates: start: 20220713
  2. SOLU-MEDROL [Concomitant]
     Active Substance: METHYLPREDNISOLONE SODIUM SUCCINATE

REACTIONS (14)
  - Eye movement disorder [Unknown]
  - Hyperreflexia [Unknown]
  - Muscle spasticity [Unknown]
  - Dysdiadochokinesis [Unknown]
  - Romberg test positive [Unknown]
  - Gait disturbance [Recovering/Resolving]
  - Cognitive disorder [Unknown]
  - Visual impairment [Unknown]
  - Muscular weakness [Unknown]
  - Postural tremor [Unknown]
  - Intention tremor [Unknown]
  - Vibratory sense increased [Unknown]
  - Clonus [Unknown]
  - Muscular weakness [Unknown]
